FAERS Safety Report 4738551-2 (Version None)
Quarter: 2005Q3

REPORT INFORMATION
  Report Type: 
  Country: None (occurrence: None)
  Receive Date: 20050803
  Receipt Date: 20050720
  Transmission Date: 20060218
  Serious: Yes (Life-Threatening)
  Sender: FDA-Public Use
  Company Number: S05-SAF-02624-01

PATIENT
  Age: 39 Year
  Sex: Male
  Weight: 80 kg

DRUGS (3)
  1. CIPRALEX (ESCITALOPRAM) [Suspect]
     Indication: DEPRESSION
     Dosage: 5 MG QD, PO
     Route: 048
     Dates: start: 20050709, end: 20050712
  2. WARFARIN SODIUM [Suspect]
     Dosage: 5 MG QD, PO
     Route: 048
     Dates: start: 19980101, end: 20050712
  3. PREDNISONE [Concomitant]

REACTIONS (3)
  - DRUG INTERACTION [None]
  - HAEMORRHAGE [None]
  - INTERNATIONAL NORMALISED RATIO INCREASED [None]
